FAERS Safety Report 9937387 (Version 2)
Quarter: 2015Q4

REPORT INFORMATION
  Report Type: Report from Study
  Country: US (occurrence: US)
  Receive Date: 20140303
  Receipt Date: 20151105
  Transmission Date: 20160305
  Serious: Yes (Other)
  Sender: FDA-Public Use
  Company Number: US-ROCHE-1334333

PATIENT
  Age: 48 Year
  Sex: Female

DRUGS (18)
  1. MYDRIACYL [Concomitant]
     Active Substance: TROPICAMIDE
     Route: 065
  2. BESIVANCE [Concomitant]
     Active Substance: BESIFLOXACIN
     Dosage: 1 DROP LEFT EYE
     Route: 065
  3. LORTAB (UNITED STATES) [Concomitant]
  4. ASPIRIN. [Concomitant]
     Active Substance: ASPIRIN
     Dosage: QD
     Route: 065
  5. BENAZEPRIL [Concomitant]
     Active Substance: BENAZEPRIL HYDROCHLORIDE
     Dosage: QD
     Route: 065
  6. ALEVE [Concomitant]
     Active Substance: NAPROXEN SODIUM
  7. KLOR-CON M10 [Concomitant]
     Active Substance: POTASSIUM CHLORIDE
     Dosage: QD
     Route: 065
  8. METFORMIN [Concomitant]
     Active Substance: METFORMIN HYDROCHLORIDE
     Dosage: BID
     Route: 065
  9. PRAVASTATIN [Concomitant]
     Active Substance: PRAVASTATIN\PRAVASTATIN SODIUM
     Dosage: QD
     Route: 065
  10. FUROSEMIDE. [Concomitant]
     Active Substance: FUROSEMIDE
     Dosage: QD
     Route: 065
  11. LUCENTIS [Suspect]
     Active Substance: RANIBIZUMAB
     Indication: DIABETIC EYE DISEASE
  12. AVASTIN [Suspect]
     Active Substance: BEVACIZUMAB
     Indication: PRODUCT USED FOR UNKNOWN INDICATION
     Route: 065
  13. GLIPIZIDE ER [Concomitant]
     Active Substance: GLIPIZIDE
     Dosage: QD
     Route: 065
  14. NEO-SYNEPHRINE [Concomitant]
     Active Substance: PHENYLEPHRINE HYDROCHLORIDE
     Route: 065
  15. BETADINE [Concomitant]
     Active Substance: POVIDONE-IODINE
     Route: 065
  16. TERBINAFINE. [Concomitant]
     Active Substance: TERBINAFINE
     Dosage: QD
     Route: 065
  17. LUCENTIS [Suspect]
     Active Substance: RANIBIZUMAB
     Indication: DIABETIC RETINOPATHY
     Route: 050
  18. LUCENTIS [Suspect]
     Active Substance: RANIBIZUMAB
     Indication: DIABETIC RETINAL OEDEMA
     Route: 050

REACTIONS (12)
  - Macular oedema [Unknown]
  - Cataract nuclear [Unknown]
  - Retinal vascular disorder [Unknown]
  - Retinal haemorrhage [Unknown]
  - Vision blurred [Unknown]
  - Retinal scar [Unknown]
  - Retinal aneurysm [Unknown]
  - Cystoid macular oedema [Unknown]
  - Macular fibrosis [Unknown]
  - Visual acuity reduced [Unknown]
  - Vitreous floaters [Unknown]
  - Vitreous haemorrhage [Unknown]

NARRATIVE: CASE EVENT DATE: 20110621
